FAERS Safety Report 10611666 (Version 1)
Quarter: 2014Q4

REPORT INFORMATION
  Report Type: Spontaneous
  Country: SE (occurrence: SE)
  Receive Date: 20141126
  Receipt Date: 20141126
  Transmission Date: 20150529
  Serious: Yes (Other)
  Sender: FDA-Public Use
  Company Number: SE-PFIZER INC-2014321167

PATIENT
  Age: 48 Year
  Sex: Female

DRUGS (13)
  1. PULMICORT TURBUHALER [Concomitant]
     Active Substance: BUDESONIDE
  2. THERALEN [Concomitant]
     Active Substance: TRIMEPRAZINE
  3. ALVEDON [Concomitant]
     Active Substance: ACETAMINOPHEN
  4. TRAMADOL [Suspect]
     Active Substance: TRAMADOL
     Dosage: UNK
  5. BRICANYL [Concomitant]
     Active Substance: TERBUTALINE SULFATE
  6. FLUDENT [Concomitant]
  7. SERTRALINE [Concomitant]
     Active Substance: SERTRALINE HYDROCHLORIDE
  8. MOVICOL [Concomitant]
     Active Substance: POLYETHYLENE GLYCOL 3350\POTASSIUM CHLORIDE\SODIUM BICARBONATE\SODIUM CHLORIDE
  9. MIRTAZAPINE. [Concomitant]
     Active Substance: MIRTAZAPINE
  10. SEREVENT [Concomitant]
     Active Substance: SALMETEROL XINAFOATE
  11. MORPHINE SULFATE. [Suspect]
     Active Substance: MORPHINE SULFATE
     Indication: BACK PAIN
     Dosage: UNK
  12. PROMETHAZINE [Concomitant]
     Active Substance: PROMETHAZINE\PROMETHAZINE HYDROCHLORIDE
  13. BEHEPAN [Concomitant]
     Active Substance: HYDROXOCOBALAMIN

REACTIONS (1)
  - Toxicity to various agents [Unknown]

NARRATIVE: CASE EVENT DATE: 2013
